FAERS Safety Report 14656120 (Version 1)
Quarter: 2018Q1

REPORT INFORMATION
  Report Type: Spontaneous
  Country: US (occurrence: US)
  Receive Date: 20180319
  Receipt Date: 20180319
  Transmission Date: 20180509
  Serious: Yes (Other)
  Sender: FDA-Public Use
  Company Number: US-ALKERMES INC.-ALK-2018-001433

PATIENT
  Age: 2 Month

DRUGS (1)
  1. VIVITROL [Suspect]
     Active Substance: NALTREXONE
     Indication: PRODUCT USED FOR UNKNOWN INDICATION
     Dosage: 380 MG, QMO
     Route: 064

REACTIONS (4)
  - Congenital hydrocephalus [Unknown]
  - Talipes [Unknown]
  - Congenital musculoskeletal anomaly [Unknown]
  - Gastrointestinal tube insertion [Unknown]
